FAERS Safety Report 4662559-9 (Version None)
Quarter: 2005Q2

REPORT INFORMATION
  Report Type: 
  Country: None (occurrence: None)
  Receive Date: 20050512
  Receipt Date: 20050427
  Transmission Date: 20051028
  Serious: Yes (Other)
  Sender: FDA-Public Use
  Company Number: FR_050406335

PATIENT
  Age: 67 Year
  Sex: Female

DRUGS (15)
  1. FORTEO [Suspect]
     Indication: OSTEOPOROSIS
     Dosage: 20 UG DAY
     Dates: start: 20050226
  2. TENORMINE             (ATENOLOL EG) [Concomitant]
  3. NICARDIPINE HCL [Concomitant]
  4. HYDROCORTISONE [Concomitant]
  5. MOPRAL           (OMEPRAZOLE RATIOPHARM) [Concomitant]
  6. EUPRESSYL (URAPIDIL) [Concomitant]
  7. INSULATARD NPH HUMAN [Concomitant]
  8. INSULIN RAPID           (INSULIN HUMAN SEMISYNTHETIC) [Concomitant]
  9. BIPRETERAX [Concomitant]
  10. AMLOR (AMLODIPINE BESILATE) [Concomitant]
  11. LORAZEPAM [Concomitant]
  12. MORPHINE SULFATE [Concomitant]
  13. PULMICORT [Concomitant]
  14. SEREVENT [Concomitant]
  15. VENTOLIN [Concomitant]

REACTIONS (6)
  - BEDRIDDEN [None]
  - BONE PAIN [None]
  - DRY MOUTH [None]
  - MYALGIA [None]
  - PARALYSIS [None]
  - VERTIGO [None]
